FAERS Safety Report 10213767 (Version 1)
Quarter: 2014Q2

REPORT INFORMATION
  Report Type: Spontaneous
  Country: US (occurrence: None)
  Receive Date: 20140530
  Receipt Date: 20140530
  Transmission Date: 20141212
  Serious: Yes (Other)
  Sender: FDA-Public Use
  Company Number: IPC201405-000248

PATIENT
  Sex: 0

DRUGS (1)
  1. ALLOPURINOL [Suspect]
     Indication: GOUT

REACTIONS (4)
  - Toxic epidermal necrolysis [None]
  - Renal failure acute [None]
  - Rhabdomyolysis [None]
  - Acute respiratory failure [None]
